FAERS Safety Report 6905093-5 (Version None)
Quarter: 2010Q3

REPORT INFORMATION
  Report Type: 
  Country: None (occurrence: None)
  Receive Date: 20100804
  Receipt Date: 20090914
  Transmission Date: 20110219
  Serious: Yes (Hospitalization)
  Sender: FDA-Public Use
  Company Number: US-PFIZER INC-2009236173

PATIENT
  Sex: Female
  Weight: 104.31 kg

DRUGS (4)
  1. LYRICA [Suspect]
     Indication: FIBROMYALGIA
     Dates: start: 20090601, end: 20090601
  2. ZOLOFT [Concomitant]
     Indication: DEPRESSION
     Dosage: UNK
  3. DOXEPIN [Concomitant]
     Indication: SLEEP APNOEA SYNDROME
     Dosage: UNK
  4. LASIX [Concomitant]
     Dosage: UNK

REACTIONS (3)
  - BLOOD GASES ABNORMAL [None]
  - COMA [None]
  - MYALGIA [None]
